FAERS Safety Report 4742274-3 (Version None)
Quarter: 2005Q3

REPORT INFORMATION
  Report Type: 
  Country: None (occurrence: None)
  Receive Date: 20050811
  Receipt Date: 20050331
  Transmission Date: 20060218
  Serious: No
  Sender: FDA-Public Use
  Company Number: US-GLAXOSMITHKLINE-A0552172A

PATIENT
  Sex: Female

DRUGS (13)
  1. PAXIL CR [Suspect]
     Indication: DRUG USE FOR UNKNOWN INDICATION
     Dosage: 25MG PER DAY
     Route: 048
     Dates: start: 20020101, end: 20050318
  2. WELLBUTRIN XL [Suspect]
     Indication: ANXIETY
     Dosage: 150MG PER DAY
     Route: 048
  3. XANAX [Concomitant]
  4. VERAPAMIL [Concomitant]
  5. HYDROCHLOROTHIAZIDE [Concomitant]
  6. METFORMIN [Concomitant]
  7. AMARYL [Concomitant]
  8. ACTOS [Concomitant]
  9. ADDERALL XR 15 [Concomitant]
  10. THEOPHYLLINE [Concomitant]
  11. ALBUTEROL [Concomitant]
  12. TYLENOL W/ CODEINE [Concomitant]
  13. TRAZODONE [Concomitant]

REACTIONS (4)
  - CHEST PAIN [None]
  - DEPRESSION [None]
  - DIZZINESS [None]
  - INSOMNIA [None]
